FAERS Safety Report 9281740 (Version 2)
Quarter: 2013Q2

REPORT INFORMATION
  Report Type: Spontaneous
  Country: US (occurrence: US)
  Receive Date: 20130510
  Receipt Date: 20130628
  Transmission Date: 20140414
  Serious: Yes (Life-Threatening, Hospitalization)
  Sender: FDA-Public Use
  Company Number: US-B.I. PHARMACEUTICALS,INC./RIDGEFIELD-2013-BI-12716BP

PATIENT
  Age: 53 Year
  Sex: Male
  Weight: 120.2 kg

DRUGS (9)
  1. PRADAXA [Suspect]
     Indication: ANTICOAGULANT THERAPY
     Dosage: 300 MG
     Route: 048
     Dates: start: 20110104, end: 20110905
  2. PRADAXA [Suspect]
     Indication: ATRIAL FIBRILLATION
  3. ZAROXOLYN [Concomitant]
     Dosage: 5 MG
     Route: 048
  4. KLOR-CON [Concomitant]
     Dosage: 40 MEQ
     Route: 048
  5. COREG [Concomitant]
     Dosage: 50 MEQ
     Route: 048
  6. LASIX [Concomitant]
     Dosage: 160 MEQ
     Route: 048
  7. TRAMADOL [Concomitant]
     Route: 048
  8. SPIRONOLACTONE [Concomitant]
     Dosage: 50 MG
     Route: 048
  9. GLIPIZIDE [Concomitant]
     Dosage: 10 MG
     Route: 048

REACTIONS (2)
  - Anaemia [Unknown]
  - Gastrointestinal haemorrhage [Unknown]
